FAERS Safety Report 6407892-5 (Version None)
Quarter: 2009Q4

REPORT INFORMATION
  Report Type: 
  Country: None (occurrence: None)
  Receive Date: 20091015
  Receipt Date: 20091007
  Transmission Date: 20100525
  Serious: Yes (Other)
  Sender: FDA-Public Use
  Company Number: 09US004262

PATIENT
  Age: 24 Month
  Sex: Male

DRUGS (1)
  1. NITETIME FREE CHRY 6HR LIQ 041(PARACETAMOL 33.333 MG/ML, DEXTROMETHORP [Suspect]
     Indication: ACCIDENTAL DRUG INTAKE BY CHILD
     Dosage: 60 ML, SINGLE, ORAL
     Route: 048
     Dates: start: 20091007, end: 20091007

REACTIONS (2)
  - ACCIDENTAL DRUG INTAKE BY CHILD [None]
  - OVERDOSE [None]
